FAERS Safety Report 8999730 (Version 1)
Quarter: 2013Q1

REPORT INFORMATION
  Report Type: Report from Study
  Country: DE (occurrence: DE)
  Receive Date: 20130102
  Receipt Date: 20130102
  Transmission Date: 20140127
  Serious: Yes (Hospitalization)
  Sender: FDA-Public Use
  Company Number: DE-EISAI INC-E2007-00944-SOL-DE

PATIENT
  Sex: Male

DRUGS (8)
  1. FYCOMPA [Suspect]
     Indication: LENNOX-GASTAUT SYNDROME
     Route: 048
     Dates: start: 201209, end: 201211
  2. PHENOBARBITAL [Concomitant]
     Indication: LENNOX-GASTAUT SYNDROME
  3. OXCARBAZEPINE [Concomitant]
     Indication: LENNOX-GASTAUT SYNDROME
     Route: 048
  4. PHENYTOIN [Concomitant]
     Indication: LENNOX-GASTAUT SYNDROME
     Route: 048
  5. RISPERDAL [Concomitant]
     Dosage: 1 MG DAILY
     Route: 048
  6. ALENDRONSAURE [Concomitant]
     Indication: OSTEOPOROSIS PROPHYLAXIS
     Dosage: 70 MG ONCE A WEEK
     Route: 048
  7. VITAMIN D SANDOZ [Concomitant]
     Indication: OSTEOPOROSIS PROPHYLAXIS
     Dosage: 1 TABLET
     Route: 048
  8. VIGANTOLETTEN [Concomitant]
     Indication: OSTEOPOROSIS PROPHYLAXIS
     Dosage: 1000 I.E.
     Route: 048

REACTIONS (8)
  - Depressed level of consciousness [Recovered/Resolved]
  - Ataxia [Recovered/Resolved]
  - Dizziness [Recovered/Resolved]
  - Diplopia [None]
  - Disturbance in attention [None]
  - Decreased interest [None]
  - Expressive language disorder [None]
  - Incontinence [None]
